FAERS Safety Report 4985667-1 (Version None)
Quarter: 2006Q2

REPORT INFORMATION
  Report Type: 
  Country: None (occurrence: None)
  Receive Date: 20060428
  Receipt Date: 20050713
  Transmission Date: 20061013
  Serious: No
  Sender: FDA-Public Use
  Company Number: US-GLAXOSMITHKLINE-A0566130A

PATIENT
  Sex: Female

DRUGS (3)
  1. ZOFRAN [Suspect]
     Dosage: 2ML VARIABLE DOSE
     Route: 030
  2. COMPAZINE [Suspect]
     Indication: DRUG USE FOR UNKNOWN INDICATION
     Route: 065
  3. NO CONCURRENT MEDICATION [Concomitant]

REACTIONS (5)
  - ABASIA [None]
  - MUSCULOSKELETAL STIFFNESS [None]
  - OFF LABEL USE [None]
  - OPISTHOTONUS [None]
  - SWOLLEN TONGUE [None]
